FAERS Safety Report 5394634-8 (Version None)
Quarter: 2007Q3

REPORT INFORMATION
  Report Type: 
  Country: None (occurrence: None)
  Receive Date: 20070723
  Receipt Date: 20070716
  Transmission Date: 20080115
  Serious: Yes (Other)
  Sender: FDA-Public Use
  Company Number: US-GENENTECH-244215

PATIENT
  Sex: Male

DRUGS (2)
  1. AVASTIN [Suspect]
     Indication: NON-SMALL CELL LUNG CANCER
     Route: 042
  2. CHEMOTHERAPY NOS [Concomitant]
     Indication: NON-SMALL CELL LUNG CANCER

REACTIONS (2)
  - BLINDNESS [None]
  - EYE INFECTION [None]
